FAERS Safety Report 4310444-4 (Version None)
Quarter: 2004Q1

REPORT INFORMATION
  Report Type: 
  Country: None (occurrence: None)
  Receive Date: 20040302
  Receipt Date: 20040217
  Transmission Date: 20041129
  Serious: Yes (Other)
  Sender: FDA-Public Use
  Company Number: 805#1#2004-00003

PATIENT
  Age: 75 Year
  Sex: Male

DRUGS (4)
  1. ALPROSTADIL [Suspect]
     Indication: ATHEROSCLEROSIS OBLITERANS
     Dosage: 120 MCG (60MCG 2 IN 1 DAY(S))  INTRAVENOUS DRIP ; 80 MCG (40MCG 2 IN 1 DAY(S)) INTRAVENOUS DRIP
     Route: 041
     Dates: start: 20040121, end: 20040127
  2. ALPROSTADIL [Suspect]
     Indication: ATHEROSCLEROSIS OBLITERANS
     Dosage: 120 MCG (60MCG 2 IN 1 DAY(S))  INTRAVENOUS DRIP ; 80 MCG (40MCG 2 IN 1 DAY(S)) INTRAVENOUS DRIP
     Route: 041
     Dates: start: 20040128, end: 20040128
  3. NIFEDIPINE [Concomitant]
  4. ENALAPRIL MALEATE [Concomitant]

REACTIONS (1)
  - RENAL FAILURE ACUTE [None]
